FAERS Safety Report 5241468-0 (Version None)
Quarter: 2007Q1

REPORT INFORMATION
  Report Type: 
  Country: None (occurrence: None)
  Receive Date: 20070220
  Receipt Date: 20070219
  Transmission Date: 20070707
  Serious: Yes (Other)
  Sender: FDA-Public Use
  Company Number: US-GLAXOSMITHKLINE-A0631936A

PATIENT
  Age: 12 Year
  Sex: Female

DRUGS (3)
  1. ZANTAC [Suspect]
     Indication: GASTROOESOPHAGEAL REFLUX DISEASE
     Dosage: 150MG PER DAY
     Route: 048
     Dates: start: 20060522, end: 20060608
  2. PREVACID [Suspect]
     Dosage: 30MG PER DAY
     Dates: start: 20060522, end: 20060608
  3. NO CONCURRENT MEDICATION [Concomitant]

REACTIONS (4)
  - BLINDNESS [None]
  - COLOUR BLINDNESS [None]
  - DIZZINESS [None]
  - LOSS OF CONSCIOUSNESS [None]
